FAERS Safety Report 7118608-1 (Version None)
Quarter: 2010Q4

REPORT INFORMATION
  Report Type: 
  Country: None (occurrence: None)
  Receive Date: 20101123
  Receipt Date: 20101110
  Transmission Date: 20110411
  Serious: Yes (Hospitalization)
  Sender: FDA-Public Use
  Company Number: BR-ELI_LILLY_AND_COMPANY-BR201011002975

PATIENT
  Sex: Female
  Weight: 40 kg

DRUGS (5)
  1. ZYPREXA [Suspect]
     Indication: MENTAL DISORDER
     Dosage: 10 MG, 2/D
     Route: 048
     Dates: start: 20080101
  2. ASPIRIN [Concomitant]
     Indication: CARDIAC DISORDER
     Dosage: UNK, UNKNOWN
     Route: 065
  3. MONOCORDIL [Concomitant]
     Indication: CARDIAC DISORDER
     Dosage: UNK, UNKNOWN
     Route: 065
  4. OMEPRAZOLE [Concomitant]
     Dosage: UNK, UNKNOWN
     Route: 065
  5. RIVOTRIL [Concomitant]
     Indication: RELAXATION THERAPY
     Dosage: UNK, UNKNOWN
     Route: 065

REACTIONS (4)
  - BACTERIAL INFECTION [None]
  - GASTROINTESTINAL TUBE INSERTION [None]
  - OFF LABEL USE [None]
  - PNEUMONIA [None]
